FAERS Safety Report 7355157-X (Version None)
Quarter: 2011Q1

REPORT INFORMATION
  Report Type: 
  Country: None (occurrence: None)
  Receive Date: 20110311
  Receipt Date: 20110311
  Transmission Date: 20110831
  Serious: Yes (Other)
  Sender: FDA-Public Use
  Company Number: None

PATIENT
  Age: 87 Year
  Sex: Male
  Weight: 95.2554 kg

DRUGS (1)
  1. NORTRIPTYLINE HCL [Suspect]
     Indication: DEPRESSION
     Dosage: 10 MG 2/DAY AT BEDTIME PO
     Route: 048
     Dates: start: 20110218

REACTIONS (2)
  - PRURITUS [None]
  - PRURITUS GENERALISED [None]
